FAERS Safety Report 9405383 (Version 6)
Quarter: 2015Q2

REPORT INFORMATION
  Report Type: Report from Study
  Country: DE (occurrence: DE)
  Receive Date: 20130717
  Receipt Date: 20150626
  Transmission Date: 20150821
  Serious: Yes (Hospitalization)
  Sender: FDA-Public Use
  Company Number: DE-UCBSA-091630

PATIENT
  Age: 72 Year
  Sex: Female
  Weight: 72 kg

DRUGS (19)
  1. PROTELOS [Concomitant]
     Active Substance: STRONTIUM RANELATE
     Dosage: 2.0
  2. FOLSAN [Concomitant]
     Active Substance: FOLIC ACID
  3. BISOPROLOL [Concomitant]
     Active Substance: BISOPROLOL
     Dosage: 2.5
  4. PHENPROCOUMON [Concomitant]
     Active Substance: PHENPROCOUMON
  5. PREDNISOLONE. [Concomitant]
     Active Substance: PREDNISOLONE
     Dosage: 5 MG
  6. KALINOR [Concomitant]
     Active Substance: POTASSIUM CITRATE
     Dosage: UNK UNK, ONCE DAILY (QD)
  7. PANTOZOL [Concomitant]
     Active Substance: PANTOPRAZOLE SODIUM
     Dosage: 40
  8. ACC [Concomitant]
     Active Substance: ACETYLCYSTEINE
     Dosage: 200
  9. OXYCODONE [Concomitant]
     Active Substance: OXYCODONE
     Dosage: 20
  10. FALITHROM [Concomitant]
     Active Substance: PHENPROCOUMON
  11. NOVALGIN [Concomitant]
     Active Substance: METAMIZOLE SODIUM
     Dosage: 500
  12. ENOXAPARIN [Concomitant]
     Active Substance: ENOXAPARIN
     Dosage: 0.8
     Route: 058
  13. CERTOLIZUMAB PEGOL RA [Suspect]
     Active Substance: CERTOLIZUMAB PEGOL
     Indication: RHEUMATOID ARTHRITIS
     Dosage: 20 DOSES RECIEVED
     Route: 058
     Dates: start: 20120620, end: 20130422
  14. SPIRONALACTONE [Concomitant]
     Active Substance: SPIRONOLACTONE
     Dosage: 25
  15. TARGIN [Concomitant]
     Active Substance: NALOXONE HYDROCHLORIDE\OXYCODONE HYDROCHLORIDE
     Dosage: 20/10
  16. SIMVASTATIN. [Concomitant]
     Active Substance: SIMVASTATIN
     Dosage: 20
  17. KLACID [Concomitant]
     Active Substance: CLARITHROMYCIN
     Dosage: 500
  18. METHOTREXATE [Concomitant]
     Active Substance: METHOTREXATE
     Dosage: 10
  19. TORASEMIDE [Concomitant]
     Active Substance: TORSEMIDE
     Dosage: 10

REACTIONS (1)
  - Bronchopneumonia [Recovered/Resolved]

NARRATIVE: CASE EVENT DATE: 20130422
